FAERS Safety Report 14763733 (Version 1)
Quarter: 2018Q2

REPORT INFORMATION
  Report Type: Spontaneous
  Country: US (occurrence: US)
  Receive Date: 20180416
  Receipt Date: 20180416
  Transmission Date: 20180711
  Serious: No
  Sender: FDA-Public Use
  Company Number: US-TAKEDA-2018TUS009609

PATIENT
  Sex: Male
  Weight: 74.83 kg

DRUGS (2)
  1. DEXILANT [Suspect]
     Active Substance: DEXLANSOPRAZOLE
     Indication: GASTRITIS
     Dosage: 60 MG, QD
     Route: 048
     Dates: start: 20180330
  2. DEXILANT [Suspect]
     Active Substance: DEXLANSOPRAZOLE
     Indication: METAPLASIA

REACTIONS (2)
  - Off label use [Unknown]
  - No adverse event [Unknown]
